FAERS Safety Report 13582033 (Version 2)
Quarter: 2017Q2

REPORT INFORMATION
  Report Type: Spontaneous
  Country: JP (occurrence: JP)
  Receive Date: 20170525
  Receipt Date: 20170616
  Transmission Date: 20170830
  Serious: Yes (Hospitalization, Other)
  Sender: FDA-Public Use
  Company Number: JP-BAXALTA-2017BXJ004599

PATIENT
  Age: 62 Year
  Sex: Male
  Weight: 52.8 kg

DRUGS (12)
  1. FEIBA [Suspect]
     Active Substance: ANTI-INHIBITOR COAGULANT COMPLEX
     Indication: HAEMOPHILIA A WITH ANTI FACTOR VIII
     Dosage: UNK, ON DEMAND
     Route: 042
     Dates: start: 201407
  2. FEIBA [Suspect]
     Active Substance: ANTI-INHIBITOR COAGULANT COMPLEX
     Dosage: 4000 IU, 3X A WEEK
     Route: 042
     Dates: start: 2016
  3. ADVATE [Suspect]
     Active Substance: ANTIHEMOPHILIC FACTOR, HUMAN RECOMBINANT
     Indication: FACTOR VIII DEFICIENCY
     Dosage: UNK
     Route: 042
     Dates: start: 2007
  4. FEIBA [Suspect]
     Active Substance: ANTI-INHIBITOR COAGULANT COMPLEX
     Dosage: 3000 IU, EVERY 12 HOURS
     Route: 042
     Dates: start: 201509, end: 201509
  5. ADVATE [Suspect]
     Active Substance: ANTIHEMOPHILIC FACTOR, HUMAN RECOMBINANT
     Dosage: 2000 IU, 3X A WEEK
     Route: 042
     Dates: start: 201406
  6. FEIBA [Suspect]
     Active Substance: ANTI-INHIBITOR COAGULANT COMPLEX
     Dosage: 3000 IU, EVERY 8 HOURS, UNTIL POD 5
     Route: 042
     Dates: start: 201509, end: 201509
  7. FEIBA [Suspect]
     Active Substance: ANTI-INHIBITOR COAGULANT COMPLEX
     Dosage: 3000 IU, 3X A WEEK
     Route: 042
     Dates: start: 201509
  8. NOVOSEVEN [Concomitant]
     Active Substance: COAGULATION FACTOR VIIA RECOMBINANT HUMAN
     Dosage: 5 MG, 2X A DAY
     Route: 065
     Dates: start: 201509, end: 201509
  9. FEIBA [Suspect]
     Active Substance: ANTI-INHIBITOR COAGULANT COMPLEX
     Dosage: 5000 IU, EVERY 12 HOURS
     Route: 042
     Dates: start: 201601
  10. FEIBA [Suspect]
     Active Substance: ANTI-INHIBITOR COAGULANT COMPLEX
     Dosage: 3000 IU, EVERY 8 HOURS
     Route: 042
     Dates: start: 201604
  11. ADVATE [Suspect]
     Active Substance: ANTIHEMOPHILIC FACTOR, HUMAN RECOMBINANT
     Dosage: 50 IU/KG, 3X A WEEK, ITI
     Route: 042
     Dates: start: 201505
  12. NOVOSEVEN [Concomitant]
     Active Substance: COAGULATION FACTOR VIIA RECOMBINANT HUMAN
     Indication: HAEMOPHILIA A WITH ANTI FACTOR VIII
     Dosage: 5 MG, ONCE
     Route: 065
     Dates: start: 201509, end: 201509

REACTIONS (12)
  - Muscle haemorrhage [Unknown]
  - Subcutaneous haematoma [Unknown]
  - Gastrointestinal haemorrhage [Unknown]
  - Haematochezia [Unknown]
  - Hemiplegia [Unknown]
  - Factor VIII inhibition [Not Recovered/Not Resolved]
  - Putamen haemorrhage [Unknown]
  - Shock haemorrhagic [Recovered/Resolved]
  - Dysphagia [Unknown]
  - Pneumothorax [Unknown]
  - Device related infection [Recovered/Resolved]
  - Haemorrhage [Unknown]

NARRATIVE: CASE EVENT DATE: 201406
